FAERS Safety Report 8152874-9 (Version None)
Quarter: 2012Q1

REPORT INFORMATION
  Report Type: 
  Country: None (occurrence: None)
  Receive Date: 20120221
  Receipt Date: 20120209
  Transmission Date: 20120608
  Serious: Yes (Hospitalization, Other)
  Sender: FDA-Public Use
  Company Number: PL-JNJFOC-20111201383

PATIENT
  Age: 21 Year
  Sex: Female

DRUGS (1)
  1. REMICADE [Suspect]
     Indication: CROHN'S DISEASE
     Dosage: INDUCTION DOSE 0-2-6 WEEKS AND MAINTENANCE DOSE PER 8 WEEKS
     Route: 042
     Dates: start: 20090323

REACTIONS (1)
  - PULMONARY TUBERCULOSIS [None]
